FAERS Safety Report 21769923 (Version 1)
Quarter: 2022Q4

REPORT INFORMATION
  Report Type: Spontaneous
  Country: DE (occurrence: DE)
  Receive Date: 20221223
  Receipt Date: 20221223
  Transmission Date: 20230112
  Serious: Yes (Hospitalization)
  Sender: FDA-Public Use
  Company Number: DE-BAXTER-2022BAX025430

PATIENT
  Sex: Male
  Weight: 104 kg

DRUGS (2)
  1. OLIMEL E [Suspect]
     Active Substance: AMINO ACIDS\DEXTROSE\ELECTROLYTES NOS\SOYBEAN OIL
     Indication: Malnutrition
     Dosage: AT AN UNSPECIFIED DOSE AND FREQUENCY ADMINISTRATED VIA CENTRALVENOUS(PORT), PARENTERAL ROUTE
     Route: 042
  2. OLIMEL E [Suspect]
     Active Substance: AMINO ACIDS\DEXTROSE\ELECTROLYTES NOS\SOYBEAN OIL
     Indication: Parenteral nutrition

REACTIONS (4)
  - Hypocholesterolaemia [Not Recovered/Not Resolved]
  - Oedema [Unknown]
  - Generalised oedema [Unknown]
  - Weight decreased [Unknown]
